FAERS Safety Report 5003543-5 (Version None)
Quarter: 2006Q2

REPORT INFORMATION
  Report Type: 
  Country: None (occurrence: None)
  Receive Date: 20060511
  Receipt Date: 20060427
  Transmission Date: 20061013
  Serious: Yes (Hospitalization)
  Sender: FDA-Public Use
  Company Number: 2006-BP-04826RO

PATIENT
  Age: 72 Year
  Sex: Male

DRUGS (1)
  1. FLECAINIDE ACETATE [Suspect]
     Indication: ATRIAL FLUTTER
     Dosage: 200 MG DAILY, PO
     Route: 048

REACTIONS (7)
  - DIZZINESS [None]
  - ELECTROCARDIOGRAM QRS COMPLEX PROLONGED [None]
  - FAILURE TO CAPTURE [None]
  - RHYTHM IDIOVENTRICULAR [None]
  - SYNCOPE [None]
  - VENTRICULAR DYSFUNCTION [None]
  - VENTRICULAR FAILURE [None]
